FAERS Safety Report 4505975-8 (Version None)
Quarter: 2004Q4

REPORT INFORMATION
  Report Type: 
  Country: None (occurrence: None)
  Receive Date: 20041025
  Receipt Date: 20040402
  Transmission Date: 20050328
  Serious: Yes (Hospitalization, Other)
  Sender: FDA-Public Use
  Company Number: US-JNJFOC-20031001040

PATIENT
  Age: 59 Year
  Sex: Female
  Weight: 87.9978 kg

DRUGS (9)
  1. REMICADE [Suspect]
     Dosage: 400 MG, INTRAVENOUS
     Route: 042
     Dates: start: 20030811
  2. METHOTREXATE [Concomitant]
  3. PREDNISONE [Concomitant]
  4. DARVOCET [Concomitant]
  5. FOLIC ACID [Concomitant]
  6. FERROUS GLUCONATE [Concomitant]
  7. ELAVIL [Concomitant]
  8. CATAPRES [Concomitant]
  9. EFFEXOR [Concomitant]

REACTIONS (5)
  - EMPYEMA [None]
  - HISTOPLASMOSIS DISSEMINATED [None]
  - LIVER FUNCTION TEST ABNORMAL [None]
  - PANCYTOPENIA [None]
  - PNEUMONIA PRIMARY ATYPICAL [None]
